FAERS Safety Report 9329525 (Version 1)
Quarter: 2013Q2

REPORT INFORMATION
  Report Type: Spontaneous
  Country: US (occurrence: US)
  Receive Date: 20130604
  Receipt Date: 20130604
  Transmission Date: 20140414
  Serious: No
  Sender: FDA-Public Use
  Company Number: US-SANOFI-AVENTIS-2012SA087612

PATIENT
  Age: 67 Year
  Sex: Female

DRUGS (5)
  1. LANTUS SOLOSTAR [Suspect]
     Indication: TYPE 2 DIABETES MELLITUS
     Dosage: DOSE:30 UNIT(S)
     Route: 058
     Dates: start: 2011
  2. LANTUS SOLOSTAR [Suspect]
     Indication: TYPE 2 DIABETES MELLITUS
     Dosage: DOSE:30 UNIT(S)
     Route: 058
     Dates: start: 2011
  3. SOLOSTAR [Suspect]
     Indication: TYPE 2 DIABETES MELLITUS
     Dates: start: 2011
  4. SOLOSTAR [Suspect]
     Indication: TYPE 2 DIABETES MELLITUS
     Dates: start: 2011
  5. LISINOPRIL [Suspect]
     Dates: start: 201302, end: 20130307

REACTIONS (8)
  - Rash [Recovering/Resolving]
  - Burning sensation [Unknown]
  - Skin exfoliation [Unknown]
  - Injection site bruising [Unknown]
  - Chills [Recovering/Resolving]
  - Blood glucose increased [Unknown]
  - Injection site pain [Recovered/Resolved]
  - Local swelling [Unknown]
